FAERS Safety Report 14719197 (Version 1)
Quarter: 2018Q2

REPORT INFORMATION
  Report Type: Spontaneous
  Country: CN (occurrence: CN)
  Receive Date: 20180405
  Receipt Date: 20180405
  Transmission Date: 20180711
  Serious: Yes (Other)
  Sender: FDA-Public Use
  Company Number: CN-CIPLA LTD.-2018CN14056

PATIENT

DRUGS (10)
  1. GANCICLOVIR. [Suspect]
     Active Substance: GANCICLOVIR
     Indication: EVIDENCE BASED TREATMENT
     Dosage: UNK
     Route: 042
  2. VANCOMYCIN [Suspect]
     Active Substance: VANCOMYCIN
     Indication: ENDOCARDITIS
     Dosage: UNK
     Route: 065
  3. METHYLPREDNISOLONE. [Suspect]
     Active Substance: METHYLPREDNISOLONE
     Indication: EVIDENCE BASED TREATMENT
     Dosage: 0.8 G, PER DAY FOR 3 DAYS
     Route: 042
  4. METHYLPREDNISOLONE. [Suspect]
     Active Substance: METHYLPREDNISOLONE
     Dosage: 0.25 G PER DAY FOR 3DAYS
     Route: 042
  5. IMMUNOGLOBULIN                     /00025201/ [Suspect]
     Active Substance: HUMAN IMMUNOGLOBULIN G
     Indication: EVIDENCE BASED TREATMENT
     Dosage: 0.4G/KG/DAY FOR 5 DAYS
     Route: 042
  6. FOSFOMYCIN TROMETAMOL [Suspect]
     Active Substance: FOSFOMYCIN TROMETHAMINE
     Indication: ENDOCARDITIS
     Dosage: UNK
     Route: 065
  7. LEVOFLOXACIN. [Suspect]
     Active Substance: LEVOFLOXACIN
     Indication: ENDOCARDITIS
     Dosage: UNK
     Route: 065
  8. GENTAMICIN. [Suspect]
     Active Substance: GENTAMICIN
     Indication: ENDOCARDITIS
     Dosage: UNK
     Route: 065
  9. AMPICILLIN/SULBACTAM ACTAVIS [Suspect]
     Active Substance: AMPICILLIN SODIUM\SULBACTAM SODIUM
     Indication: ENDOCARDITIS
     Dosage: UNK
     Route: 065
  10. CEFTRIAXONE. [Suspect]
     Active Substance: CEFTRIAXONE
     Indication: EVIDENCE BASED TREATMENT
     Dosage: UNK
     Route: 042

REACTIONS (1)
  - Drug ineffective [Unknown]
